FAERS Safety Report 10572905 (Version 2)
Quarter: 2014Q4

REPORT INFORMATION
  Report Type: Spontaneous
  Country: US (occurrence: US)
  Receive Date: 20141110
  Receipt Date: 20141110
  Transmission Date: 20150529
  Serious: No
  Sender: FDA-Public Use
  Company Number: US-TEVA-479393USA

PATIENT
  Sex: Female

DRUGS (1)
  1. CAMRESELO [Suspect]
     Active Substance: ETHINYL ESTRADIOL\LEVONORGESTREL
     Dosage: 0.1 MG/0.02 MG/0.01 MG
     Dates: start: 20130606

REACTIONS (2)
  - Metrorrhagia [Unknown]
  - Drug ineffective [Unknown]
